FAERS Safety Report 4810802-5 (Version None)
Quarter: 2005Q4

REPORT INFORMATION
  Report Type: 
  Country: None (occurrence: None)
  Receive Date: 20051024
  Receipt Date: 20051010
  Transmission Date: 20060501
  Serious: Yes (Other)
  Sender: FDA-Public Use
  Company Number: 2005118066

PATIENT
  Age: 18 Year
  Sex: Male
  Weight: 81.6475 kg

DRUGS (1)
  1. DRAMAMINE [Suspect]
     Indication: MOTION SICKNESS
     Dosage: 2 TABLETS ONCE, ORAL
     Route: 048
     Dates: start: 20050821, end: 20050821

REACTIONS (2)
  - CONDITION AGGRAVATED [None]
  - CONVULSION [None]
